FAERS Safety Report 5113423-2 (Version None)
Quarter: 2006Q3

REPORT INFORMATION
  Report Type: 
  Country: None (occurrence: None)
  Receive Date: 20060921
  Receipt Date: 20060921
  Transmission Date: 20061208
  Serious: Yes (Life-Threatening, Hospitalization)
  Sender: FDA-Public Use
  Company Number: None

PATIENT
  Age: 3 Year
  Sex: Male
  Weight: 15 kg

DRUGS (4)
  1. PEGASPARAGINASE  -ONCOSPAR-  750 INTERNATIONAL UNITS/ML  ENZON [Suspect]
     Dosage: 1675 INTERNATIONAL UNITS   ONCE   IM
     Route: 030
     Dates: start: 20060805, end: 20060805
  2. PEGASPARAGINASE  -ONCOSPAR-  750 INTERNATIONAL UNITS/ML  ENZON [Suspect]
     Dosage: 1675 INTERNATIONAL UNITS   ONCE   IM
     Route: 030
     Dates: start: 20060906, end: 20060906
  3. METHOTREXATE [Concomitant]
  4. VINCRISTINE [Concomitant]

REACTIONS (4)
  - COUGH [None]
  - PRURITUS [None]
  - RASH [None]
  - VOMITING [None]
